FAERS Safety Report 10156686 (Version 1)
Quarter: 2014Q2

REPORT INFORMATION
  Report Type: Spontaneous
  Country: GB (occurrence: None)
  Receive Date: 20140506
  Receipt Date: 20140506
  Transmission Date: 20141212
  Serious: Yes (Hospitalization)
  Sender: FDA-Public Use
  Company Number: None

PATIENT
  Age: 50 Year
  Sex: Male
  Weight: 77.11 kg

DRUGS (1)
  1. CORACTEN XL 60 [Suspect]
     Indication: HYPERTENSION
     Dosage: 1 PILL ?ONCE DAILY ?TAKEN BY MOUTH
     Route: 048

REACTIONS (8)
  - Headache [None]
  - Hypoaesthesia [None]
  - Peripheral swelling [None]
  - Alopecia [None]
  - Hypoaesthesia [None]
  - Paraesthesia [None]
  - Mood swings [None]
  - Cerebrovascular accident [None]
